FAERS Safety Report 19598386 (Version 3)
Quarter: 2021Q3

REPORT INFORMATION
  Report Type: Report from Study
  Country: None (occurrence: CH)
  Receive Date: 20210723
  Receipt Date: 20210730
  Transmission Date: 20211014
  Serious: Yes (Hospitalization)
  Sender: FDA-Public Use
  Company Number: CH-ABBVIE-21K-151-3826004-00

PATIENT
  Age: 65 Year
  Sex: Male

DRUGS (3)
  1. DUODOPA [Suspect]
     Active Substance: CARBIDOPA\LEVODOPA
     Indication: PARKINSON^S DISEASE
     Dosage: MD: 10 ML, CRD: 2.7 ML/H, CRN: 0 ML/H, ED: 2.5 ML?16H THERAPY
     Route: 050
     Dates: start: 20190606
  2. DUODOPA [Suspect]
     Active Substance: CARBIDOPA\LEVODOPA
     Dosage: FREQUENCY TEXT ? 16H THERAPY
     Route: 050
     Dates: end: 20210715
  3. DUODOPA [Suspect]
     Active Substance: CARBIDOPA\LEVODOPA
     Dosage: FREQUENCY TEXT? 16H THERAPY?MD: 5 ML, CRD: 1.3 ML/H, ED: 2.5 ML
     Route: 050
     Dates: start: 20210715

REACTIONS (7)
  - Akinesia [Not Recovered/Not Resolved]
  - Parkinsonian gait [Unknown]
  - Memory impairment [Not Recovered/Not Resolved]
  - Device dislocation [Recovered/Resolved]
  - Stress [Unknown]
  - Dementia [Not Recovered/Not Resolved]
  - Dyskinesia [Not Recovered/Not Resolved]

NARRATIVE: CASE EVENT DATE: 20210317
